FAERS Safety Report 9238027 (Version 2)
Quarter: 2013Q2

REPORT INFORMATION
  Report Type: Spontaneous
  Country: US (occurrence: None)
  Receive Date: 20130409
  Receipt Date: 20130508
  Transmission Date: 20140414
  Serious: Yes (Hospitalization, Other)
  Sender: FDA-Public Use
  Company Number: 2013PROUSA02702

PATIENT
  Age: 85 Year
  Sex: Male

DRUGS (1)
  1. PROVENGE (SIPULEUCEL-T) SUSPENSION, 250ML [Suspect]
     Indication: PROSTATE CANCER METASTATIC
     Route: 042
     Dates: start: 20130304, end: 20130304

REACTIONS (3)
  - Skin necrosis [None]
  - Skin ulcer [None]
  - Generalised oedema [None]
